FAERS Safety Report 6041933-2 (Version None)
Quarter: 2009Q1

REPORT INFORMATION
  Report Type: 
  Country: None (occurrence: None)
  Receive Date: 20090116
  Receipt Date: 20080506
  Transmission Date: 20090719
  Serious: No
  Sender: FDA-Public Use
  Company Number: US-BAYER-200812124BCC

PATIENT
  Age: 72 Year
  Sex: Male
  Weight: 120 kg

DRUGS (5)
  1. ALEVE (CAPLET) [Suspect]
     Indication: HEADACHE
     Dosage: TOTAL DAILY DOSE: 220 MG  UNIT DOSE: 220 MG
     Route: 048
     Dates: start: 20080506
  2. UNKNOWN STUDY DRUG [Suspect]
     Indication: ANTICOAGULANT THERAPY
  3. CRESTOR [Concomitant]
     Route: 048
  4. LISINOPRIL [Concomitant]
  5. DILTIA XR [Concomitant]
     Route: 048

REACTIONS (1)
  - ABDOMINAL DISCOMFORT [None]
